FAERS Safety Report 5333963-0 (Version None)
Quarter: 2007Q2

REPORT INFORMATION
  Report Type: 
  Country: None (occurrence: None)
  Receive Date: 20070524
  Receipt Date: 20070515
  Transmission Date: 20071010
  Serious: Yes (Life-Threatening, Hospitalization)
  Sender: FDA-Public Use
  Company Number: FI-ABBOTT-07P-055-0367018-00

PATIENT
  Sex: Male

DRUGS (9)
  1. LIPANTHYL [Suspect]
     Indication: TYPE V HYPERLIPIDAEMIA
     Route: 048
     Dates: start: 20040101, end: 20070223
  2. ATORVASTATIN [Suspect]
     Indication: TYPE V HYPERLIPIDAEMIA
     Route: 048
     Dates: end: 20070223
  3. ATORVASTATIN [Suspect]
  4. INSULIN PROTOPHEN [Concomitant]
     Indication: DIABETES MELLITUS INSULIN-DEPENDENT
     Route: 058
     Dates: start: 19930207
  5. ACTRAPID INSULIN [Concomitant]
     Indication: DIABETES MELLITUS INSULIN-DEPENDENT
     Route: 058
     Dates: start: 19930207
  6. RAMIPRIL [Concomitant]
     Indication: DRUG USE FOR UNKNOWN INDICATION
     Route: 048
     Dates: start: 20040901
  7. ATENOLOL [Concomitant]
     Indication: DRUG USE FOR UNKNOWN INDICATION
     Route: 048
     Dates: start: 20040907
  8. NITROSID RETARD [Concomitant]
     Indication: DRUG USE FOR UNKNOWN INDICATION
     Route: 048
     Dates: start: 20040601
  9. ACETYLSALICYLIC ACID SRT [Concomitant]
     Indication: DRUG USE FOR UNKNOWN INDICATION
     Route: 048
     Dates: start: 19980724

REACTIONS (7)
  - ACCIDENTAL OVERDOSE [None]
  - BLOOD CREATININE INCREASED [None]
  - CHROMATURIA [None]
  - LIPIDS INCREASED [None]
  - LIVER FUNCTION TEST ABNORMAL [None]
  - RHABDOMYOLYSIS [None]
  - ULTRASOUND ABDOMEN ABNORMAL [None]
